FAERS Safety Report 8386314-1 (Version None)
Quarter: 2012Q2

REPORT INFORMATION
  Report Type: 
  Country: None (occurrence: None)
  Receive Date: 20120525
  Receipt Date: 20120516
  Transmission Date: 20120825
  Serious: Yes (Hospitalization)
  Sender: FDA-Public Use
  Company Number: MX-SANOFI-AVENTIS-2012SA035125

PATIENT
  Age: 59 Year
  Sex: Female
  Weight: 52 kg

DRUGS (6)
  1. ARAVA [Suspect]
     Indication: RHEUMATOID ARTHRITIS
     Dosage: STRENGTH- 100MG TABLET
     Route: 048
     Dates: start: 20100101, end: 20100101
  2. METHOTREXATE [Concomitant]
     Indication: RHEUMATOID ARTHRITIS
     Route: 030
     Dates: start: 19630101
  3. GABAPENTIN [Concomitant]
     Indication: TRIGEMINAL NEURALGIA
     Route: 048
     Dates: start: 20060101
  4. NEXIUM [Concomitant]
     Route: 048
     Dates: start: 20070101
  5. ARAVA [Suspect]
     Dosage: STRENGTH- 20 MG TABLET
     Route: 048
     Dates: start: 20100101
  6. TRIMEBUTINE MALEATE [Concomitant]
     Route: 048
     Dates: start: 20070101

REACTIONS (6)
  - DIARRHOEA [None]
  - DEHYDRATION [None]
  - JOINT STIFFNESS [None]
  - NAUSEA [None]
  - ALOPECIA [None]
  - INAPPROPRIATE SCHEDULE OF DRUG ADMINISTRATION [None]
